FAERS Safety Report 13779503 (Version 2)
Quarter: 2017Q4

REPORT INFORMATION
  Report Type: Spontaneous
  Country: US (occurrence: US)
  Receive Date: 20170721
  Receipt Date: 20171024
  Transmission Date: 20180320
  Serious: Yes (Death, Hospitalization)
  Sender: FDA-Public Use
  Company Number: US-VIFOR (INTERNATIONAL) INC.-VIT-2016-07486

PATIENT
  Sex: Female

DRUGS (19)
  1. TYLENOL [Concomitant]
     Active Substance: ACETAMINOPHEN
  2. ZOLOFT [Concomitant]
     Active Substance: SERTRALINE HYDROCHLORIDE
  3. VELTASSA [Suspect]
     Active Substance: PATIROMER
     Route: 048
     Dates: start: 20161109
  4. CARVEDILOL. [Concomitant]
     Active Substance: CARVEDILOL
  5. ALPRAZOLAM. [Concomitant]
     Active Substance: ALPRAZOLAM
  6. PARACETAMOL/HYDROCODONE [Concomitant]
  7. CALCIUM [Concomitant]
     Active Substance: CALCIUM
  8. GLYBURIDE. [Concomitant]
     Active Substance: GLYBURIDE
  9. PROCARDIA [Concomitant]
     Active Substance: NIFEDIPINE
  10. EMLA [Concomitant]
     Active Substance: LIDOCAINE\PRILOCAINE
  11. GABAPENTIN. [Concomitant]
     Active Substance: GABAPENTIN
  12. KLONOPIN [Concomitant]
     Active Substance: CLONAZEPAM
  13. AMLODIPINE BESILATE [Concomitant]
     Active Substance: AMLODIPINE BESYLATE
  14. CLONIDINE HYDROCHLORIDE. [Concomitant]
     Active Substance: CLONIDINE HYDROCHLORIDE
  15. VELTASSA [Suspect]
     Active Substance: PATIROMER
     Indication: HYPERKALAEMIA
     Dates: start: 201601
  16. VELTASSA [Suspect]
     Active Substance: PATIROMER
     Route: 048
  17. DIALYVITE [Concomitant]
     Active Substance: ASCORBIC ACID\BIOTIN\CALCIUM PANTOTHENATE\COBALAMIN\FOLIC ACID\NIACINAMIDE\PYRIDOXINE HYDROCHLORIDE\RIBOFLAVIN\THIAMINE MONONITRATE
  18. HYDRALAZINE HYDROCHLORIDE. [Concomitant]
     Active Substance: HYDRALAZINE HYDROCHLORIDE
  19. IPRATROPIUM BROMIDE/ALBUTEROL [Concomitant]

REACTIONS (5)
  - Adverse drug reaction [Unknown]
  - Death [Fatal]
  - Off label use [Unknown]
  - Feeling abnormal [Unknown]
  - Unevaluable event [Unknown]
